FAERS Safety Report 9580994 (Version 1)
Quarter: 2013Q4

REPORT INFORMATION
  Report Type: Report from Study
  Country: DE (occurrence: DE)
  Receive Date: 20131002
  Receipt Date: 20131002
  Transmission Date: 20140711
  Serious: Yes (Other)
  Sender: FDA-Public Use
  Company Number: DE-ABBVIE-13P-062-1152027-00

PATIENT
  Age: 67 Year
  Sex: Male

DRUGS (2)
  1. HUMIRA [Suspect]
     Indication: RHEUMATOID ARTHRITIS
     Dates: start: 20121023, end: 20130226
  2. HUMIRA [Suspect]
     Dates: start: 20130424

REACTIONS (2)
  - Diabetes mellitus [Not Recovered/Not Resolved]
  - Infection [Unknown]
